FAERS Safety Report 12347560 (Version 2)
Quarter: 2016Q2

REPORT INFORMATION
  Report Type: Other
  Country: None (occurrence: US)
  Receive Date: 20160509
  Receipt Date: 20160513
  Transmission Date: 20160815
  Serious: Yes (Hospitalization)
  Sender: FDA-Public Use
  Company Number: US-ANTARES PHARMA, INC.-2016-LIT-ME-0265

PATIENT
  Sex: Female

DRUGS (3)
  1. INFLIXIMAB [Suspect]
     Active Substance: INFLIXIMAB
     Indication: CROHN^S DISEASE
  2. METHOTREXATE [Suspect]
     Active Substance: METHOTREXATE
     Indication: CROHN^S DISEASE
  3. MESALAMINE. [Suspect]
     Active Substance: MESALAMINE
     Indication: CROHN^S DISEASE

REACTIONS (11)
  - Headache [None]
  - Epstein-Barr viraemia [None]
  - Myalgia [None]
  - Pyrexia [None]
  - Dysphagia [None]
  - Adenotonsillectomy [None]
  - Nasal congestion [None]
  - Tachycardia [None]
  - Off label use [None]
  - Tonsillitis [None]
  - Lymphadenopathy [None]
